FAERS Safety Report 6891660-4 (Version None)
Quarter: 2010Q3

REPORT INFORMATION
  Report Type: 
  Country: None (occurrence: None)
  Receive Date: 20100731
  Receipt Date: 20070913
  Transmission Date: 20110219
  Serious: No
  Sender: FDA-Public Use
  Company Number: US-PFIZER INC-2007077548

PATIENT
  Sex: Female

DRUGS (5)
  1. AMLODIPINE [Suspect]
  2. ATENOLOL [Suspect]
  3. CLONIDINE [Suspect]
  4. DIOVAN HCT [Suspect]
  5. KLOR-CON [Suspect]

REACTIONS (1)
  - JOINT SWELLING [None]
